FAERS Safety Report 8120817-X (Version None)
Quarter: 2012Q1

REPORT INFORMATION
  Report Type: 
  Country: None (occurrence: None)
  Receive Date: 20120207
  Receipt Date: 20120131
  Transmission Date: 20120608
  Serious: Yes (Hospitalization)
  Sender: FDA-Public Use
  Company Number: AR-AMGEN-ARGSP2012006951

PATIENT
  Age: 53 Year
  Sex: Male
  Weight: 81 kg

DRUGS (4)
  1. ENBREL [Suspect]
     Indication: RHEUMATOID ARTHRITIS
     Dosage: 50 MG, WEEKLY
     Route: 058
     Dates: start: 20100318, end: 20111008
  2. DELTASONE                          /00016001/ [Concomitant]
     Dosage: UNK
  3. HYDROXYCHLOROQUINE SULFATE [Concomitant]
     Dosage: UNK
  4. BUDESONIDE [Concomitant]
     Dosage: UNK

REACTIONS (2)
  - EMPYEMA [None]
  - PNEUMOTHORAX [None]
